FAERS Safety Report 9445706 (Version 3)
Quarter: 2013Q3

REPORT INFORMATION
  Report Type: Spontaneous
  Country: GB (occurrence: GB)
  Receive Date: 20130807
  Receipt Date: 20130826
  Transmission Date: 20140515
  Serious: Yes (Other)
  Sender: FDA-Public Use
  Company Number: PHFR2013GB003699

PATIENT
  Age: 61 Year
  Sex: Male

DRUGS (12)
  1. CLOZARIL [Suspect]
     Indication: SCHIZOPHRENIA
     Dosage: UNK
     Route: 048
     Dates: start: 20121128
  2. CLOZARIL [Suspect]
     Dosage: 37.5 MG, (12.5 MG IN THE MORNING AND 25 MGS IN THE EVENING)
     Route: 048
  3. CLOZARIL [Suspect]
     Dosage: 43.75 MG, (18.75 MG IN THE MORNING AND 25 MG IN THE EVENING FOR A MONTH)
     Route: 048
  4. CLOZARIL [Suspect]
     Dosage: 25 MG, BID
  5. ENTACAPONE [Concomitant]
     Indication: PARKINSON^S DISEASE
     Dosage: 200 MG, BID
  6. CO-BENELDOPA [Concomitant]
     Dosage: UNK (MID DAY AND EVENING)
  7. CO-BENELDOPA [Concomitant]
     Dosage: 1 DF, AT NIGHT
  8. CO-BENELDOPA [Concomitant]
     Dosage: 200/50 ONE TABLET IN THE MORNING
  9. RIVASTIGMINE [Concomitant]
     Indication: PARKINSON^S DISEASE
     Dosage: 1 DF, IN THE EVENING
     Dates: start: 2012
  10. NEFOPAM [Concomitant]
     Indication: PAIN
     Dosage: 90 MG, (30 MG IN THE MORNING AND 60 MG AT NIGHT)
     Route: 048
  11. PARACETAMOL [Concomitant]
     Dosage: 1 G, TID
  12. MADOPAR [Concomitant]
     Indication: PARKINSON^S DISEASE
     Dosage: UNK UKN, QD

REACTIONS (9)
  - Hypoxia [Recovered/Resolved]
  - Cyanosis [Recovered/Resolved]
  - Hallucination, visual [Unknown]
  - Delusion [Unknown]
  - Rapid eye movements sleep abnormal [Unknown]
  - Sleep talking [Unknown]
  - Abnormal behaviour [Unknown]
  - Emotional distress [Unknown]
  - Fatigue [Unknown]
